FAERS Safety Report 8564868-X (Version None)
Quarter: 2012Q3

REPORT INFORMATION
  Report Type: 
  Country: None (occurrence: None)
  Receive Date: 20120803
  Receipt Date: 20120611
  Transmission Date: 20120928
  Serious: No
  Sender: FDA-Public Use
  Company Number: US-GLAXOSMITHKLINE-A0980795A

PATIENT
  Age: 63 Year
  Sex: Male

DRUGS (18)
  1. RANITIDINE [Concomitant]
  2. POLYETHYLENE GLYCOL [Concomitant]
  3. STALEVO 100 [Concomitant]
  4. ZETIA [Concomitant]
  5. METFORMIN HCL [Concomitant]
  6. DIAVAN [Concomitant]
  7. OMEPRAZOLE [Concomitant]
  8. NEXIUM [Concomitant]
  9. NADOLOL [Concomitant]
  10. CALCIUM [Concomitant]
  11. HORIZANT [Suspect]
     Indication: RESTLESS LEGS SYNDROME
     Dosage: 600MG PER DAY
     Route: 048
     Dates: start: 20120301
  12. PRIMIDONE [Concomitant]
  13. REGLAN [Concomitant]
  14. REQUIP [Concomitant]
  15. NAPROXIN [Concomitant]
  16. SUCRALFATE [Concomitant]
  17. VITAMIN E [Concomitant]
  18. ASPIRIN [Concomitant]

REACTIONS (9)
  - DYSKINESIA [None]
  - FEELING ABNORMAL [None]
  - HYPOAESTHESIA [None]
  - INSOMNIA [None]
  - BONE PAIN [None]
  - THINKING ABNORMAL [None]
  - MUSCULAR WEAKNESS [None]
  - MUSCLE TIGHTNESS [None]
  - FORMICATION [None]
